FAERS Safety Report 5423186-9 (Version None)
Quarter: 2007Q3

REPORT INFORMATION
  Report Type: 
  Country: None (occurrence: None)
  Receive Date: 20070730
  Receipt Date: 20060913
  Transmission Date: 20080115
  Serious: Yes (Hospitalization, Other)
  Sender: FDA-Public Use
  Company Number: 200615570BWH

PATIENT
  Age: 41 Year
  Sex: Female

DRUGS (1)
  1. AVELOX [Suspect]
     Indication: IMPAIRED HEALING
     Dosage: 400 MG, ONCE, ORAL
     Route: 048
     Dates: start: 20060101

REACTIONS (2)
  - BLOOD PRESSURE DECREASED [None]
  - NAUSEA [None]
